FAERS Safety Report 7480473-0 (Version None)
Quarter: 2011Q2

REPORT INFORMATION
  Report Type: 
  Country: None (occurrence: None)
  Receive Date: 20110512
  Receipt Date: 20110512
  Transmission Date: 20111010
  Serious: No
  Sender: FDA-Public Use
  Company Number: None

PATIENT
  Age: 17 Year
  Sex: Female
  Weight: 45.3597 kg

DRUGS (1)
  1. SINGULAIR [Suspect]
     Indication: MULTIPLE ALLERGIES
     Dosage: 10MG PILL ONCE A DAY PO FOR ABOUT A YEAR+CONTINUE
     Route: 048
     Dates: start: 20100601, end: 20110514

REACTIONS (1)
  - NIGHTMARE [None]
